FAERS Safety Report 16067849 (Version 1)
Quarter: 2019Q1

REPORT INFORMATION
  Report Type: Spontaneous
  Country: US (occurrence: US)
  Receive Date: 20190313
  Receipt Date: 20190313
  Transmission Date: 20190418
  Serious: Yes (Hospitalization, Disabling)
  Sender: FDA-Public Use
  Company Number: US-JNJFOC-20190314043

PATIENT
  Age: 57 Year
  Sex: Male

DRUGS (2)
  1. INVOKANA [Suspect]
     Active Substance: CANAGLIFLOZIN
     Indication: PRODUCT USED FOR UNKNOWN INDICATION
     Route: 048
  2. METFORMIN [Suspect]
     Active Substance: METFORMIN HYDROCHLORIDE
     Indication: PRODUCT USED FOR UNKNOWN INDICATION
     Route: 048
     Dates: end: 20160105

REACTIONS (5)
  - Acute kidney injury [Recovering/Resolving]
  - Wound sepsis [Unknown]
  - Impaired healing [Unknown]
  - Leg amputation [Unknown]
  - Cellulitis [Unknown]

NARRATIVE: CASE EVENT DATE: 20160105
